FAERS Safety Report 17692224 (Version 1)
Quarter: 2020Q2

REPORT INFORMATION
  Report Type: Spontaneous
  Country: US (occurrence: US)
  Receive Date: 20200422
  Receipt Date: 20200422
  Transmission Date: 20200714
  Serious: No
  Sender: FDA-Public Use
  Company Number: US-PFIZER INC-2020153402

PATIENT
  Age: 43 Year
  Sex: Male

DRUGS (1)
  1. NIVESTYM [Suspect]
     Active Substance: FILGRASTIM-AAFI
     Indication: AGRANULOCYTOSIS
     Dosage: 480 UG, DAILY X 3 WEEKLY

REACTIONS (2)
  - White blood cell count decreased [Unknown]
  - Product prescribing issue [Unknown]
